FAERS Safety Report 6785814-5 (Version None)
Quarter: 2010Q2

REPORT INFORMATION
  Report Type: 
  Country: None (occurrence: None)
  Receive Date: 20100621
  Receipt Date: 20100621
  Transmission Date: 20101027
  Serious: Yes (Hospitalization)
  Sender: FDA-Public Use
  Company Number: None

PATIENT
  Sex: Female
  Weight: 67.586 kg

DRUGS (5)
  1. PACLITAXEL POLIGLUMEX, 300 MG  2/CTI [Suspect]
     Indication: NON-SMALL CELL LUNG CANCER
     Dosage: 175 MG/M2 EVERY 3 WKS, IV (FIRST DOSE)
     Route: 042
     Dates: start: 20100602
  2. M.V.I. [Concomitant]
  3. COUMADIN [Concomitant]
  4. DYAZIDE [Concomitant]
  5. PAXIL [Concomitant]

REACTIONS (3)
  - CATHETER SITE HAEMORRHAGE [None]
  - CHEST PAIN [None]
  - INTERNATIONAL NORMALISED RATIO INCREASED [None]
